FAERS Safety Report 13328037 (Version 1)
Quarter: 2017Q1

REPORT INFORMATION
  Report Type: Spontaneous
  Country: US (occurrence: US)
  Receive Date: 20170313
  Receipt Date: 20170313
  Transmission Date: 20170428
  Serious: No
  Sender: FDA-Public Use
  Company Number: US-JNJFOC-20170213489

PATIENT
  Age: 53 Year
  Sex: Female
  Weight: 81.65 kg

DRUGS (2)
  1. WOMENS ROGAINE UNSCENTED [Suspect]
     Active Substance: MINOXIDIL
     Indication: ALOPECIA
     Dosage: 5 SQUIRTS
     Route: 061
     Dates: start: 20160901, end: 201701
  2. WOMENS ROGAINE UNSCENTED [Suspect]
     Active Substance: MINOXIDIL
     Indication: ALOPECIA
     Route: 061
     Dates: start: 201702

REACTIONS (2)
  - Alopecia [Recovering/Resolving]
  - Expired product administered [Recovering/Resolving]

NARRATIVE: CASE EVENT DATE: 20160901
